FAERS Safety Report 24156875 (Version 1)
Quarter: 2024Q3

REPORT INFORMATION
  Report Type: Spontaneous
  Country: IL (occurrence: IL)
  Receive Date: 20240731
  Receipt Date: 20240731
  Transmission Date: 20241016
  Serious: Yes (Other)
  Sender: TEVA
  Company Number: IL-TEVA-VS-3208131

PATIENT
  Age: 43 Year
  Sex: Male

DRUGS (3)
  1. CARBIDOPA\LEVODOPA [Suspect]
     Active Substance: CARBIDOPA\LEVODOPA
     Indication: Product used for unknown indication
     Route: 065
  2. CARBIDOPA\LEVODOPA [Suspect]
     Active Substance: CARBIDOPA\LEVODOPA
     Indication: Initial insomnia
     Dosage: TIME INTERVAL: 0.14285714 DAYS
     Route: 065
  3. APOMORPHINE [Suspect]
     Active Substance: APOMORPHINE
     Route: 065

REACTIONS (7)
  - Decreased activity [Unknown]
  - Gait inability [Unknown]
  - Drug ineffective [Unknown]
  - Muscle spasms [Unknown]
  - Discomfort [Unknown]
  - Nausea [Unknown]
  - Tremor [Unknown]
